FAERS Safety Report 11741618 (Version 2)
Quarter: 2016Q1

REPORT INFORMATION
  Report Type: Report from Study
  Country: FR (occurrence: FR)
  Receive Date: 20151116
  Receipt Date: 20160105
  Transmission Date: 20160525
  Serious: Yes (Hospitalization, Other)
  Sender: FDA-Public Use
  Company Number: FR-BAYER-2015-426507

PATIENT
  Age: 70 Year
  Sex: Male
  Weight: 73 kg

DRUGS (6)
  1. SORAFENIB (RAF KINASE INHIBITOR) [Suspect]
     Active Substance: SORAFENIB
     Indication: HEPATOCELLULAR CARCINOMA
     Dosage: 800 MG, QD
     Route: 048
     Dates: start: 20150715, end: 20150908
  2. DIPROLENE [Concomitant]
     Active Substance: BETAMETHASONE DIPROPIONATE
  3. VERAPAMIL [Interacting]
     Active Substance: VERAPAMIL HYDROCHLORIDE
     Indication: ATRIAL FIBRILLATION
     Dosage: 40 MG, QD
     Route: 048
     Dates: start: 20150812, end: 20150908
  4. FORADIL [Concomitant]
     Active Substance: FORMOTEROL FUMARATE
  5. MIFLASONE [Concomitant]
     Active Substance: BECLOMETHASONE DIPROPIONATE
  6. DEXERYL [GLYCEROL,PARAFFIN, LIQUID,WHITE SOFT PARAFFIN] [Concomitant]

REACTIONS (4)
  - Pneumothorax [Recovered/Resolved]
  - Drug interaction [None]
  - Atrial fibrillation [Recovered/Resolved]
  - Loss of consciousness [Recovered/Resolved]

NARRATIVE: CASE EVENT DATE: 2015
